FAERS Safety Report 14853713 (Version 4)
Quarter: 2018Q2

REPORT INFORMATION
  Report Type: Spontaneous
  Country: US (occurrence: US)
  Receive Date: 20180507
  Receipt Date: 20180529
  Transmission Date: 20180711
  Serious: No
  Sender: FDA-Public Use
  Company Number: US-GLAXOSMITHKLINE-US2018GSK077138

PATIENT
  Age: 7 Year
  Sex: Male

DRUGS (1)
  1. FLOVENT DISKUS [Suspect]
     Active Substance: FLUTICASONE PROPIONATE
     Indication: ASTHMA
     Dosage: 1 PUFF(S), QD

REACTIONS (5)
  - Underdose [Unknown]
  - Wrong technique in device usage process [Unknown]
  - Inappropriate schedule of drug administration [Unknown]
  - Device deployment issue [Unknown]
  - Device defective [Unknown]

NARRATIVE: CASE EVENT DATE: 20180327
